FAERS Safety Report 25084543 (Version 1)
Quarter: 2025Q1

REPORT INFORMATION
  Report Type: Spontaneous
  Country: JP (occurrence: JP)
  Receive Date: 20250317
  Receipt Date: 20250317
  Transmission Date: 20250409
  Serious: Yes (Hospitalization, Other)
  Sender: PFIZER
  Company Number: JP-TAKEDA-2020TEU005474

PATIENT
  Age: 75 Year
  Sex: Male
  Weight: 68 kg

DRUGS (9)
  1. VYNDAQEL [Suspect]
     Active Substance: TAFAMIDIS MEGLUMINE
     Indication: Cardiac amyloidosis
     Dosage: 80 MG, 1X/DAY
     Route: 048
     Dates: start: 20200428
  2. AMITIZA [Suspect]
     Active Substance: LUBIPROSTONE
     Indication: Constipation
     Dosage: 24 UG, 1X/DAY
     Route: 048
     Dates: start: 20180702, end: 20180930
  3. AMITIZA [Suspect]
     Active Substance: LUBIPROSTONE
     Dosage: 24 UG, 2X/DAY
     Route: 048
     Dates: start: 20181001
  4. CALCIUM SENNOSIDES [Suspect]
     Active Substance: SENNOSIDES
     Indication: Constipation
     Dosage: 24 MG, 2X/DAY
     Route: 048
     Dates: start: 20180702, end: 20200427
  5. CALCIUM SENNOSIDES [Suspect]
     Active Substance: SENNOSIDES
     Dosage: 36 MG, 3X/DAY
     Route: 048
     Dates: start: 20200428
  6. CALCIUM SENNOSIDES [Suspect]
     Active Substance: SENNOSIDES
     Dosage: 12 MG, 3X/DAY
     Route: 048
     Dates: start: 20200526
  7. SAMSCA [Concomitant]
     Active Substance: TOLVAPTAN
     Dates: start: 20200331, end: 20200427
  8. XARELTO [Concomitant]
     Active Substance: RIVAROXABAN
     Route: 048
  9. MAGNESIUM OXIDE [Concomitant]
     Active Substance: MAGNESIUM OXIDE
     Dates: start: 20180702, end: 20200428

REACTIONS (3)
  - Subdural haematoma [Recovering/Resolving]
  - Weight decreased [Unknown]
  - Diarrhoea [Unknown]

NARRATIVE: CASE EVENT DATE: 20200401
